FAERS Safety Report 7378024-4 (Version None)
Quarter: 2011Q1

REPORT INFORMATION
  Report Type: 
  Country: None (occurrence: None)
  Receive Date: 20110317
  Receipt Date: 20110303
  Transmission Date: 20110831
  Serious: Yes (Death, Hospitalization, Other)
  Sender: FDA-Public Use
  Company Number: 2011AC000002

PATIENT
  Sex: Male

DRUGS (38)
  1. DIGOXIN [Suspect]
     Indication: TACHYCARDIA
     Dosage: 0.125 MG;QD;PO
     Route: 048
     Dates: start: 20010101
  2. ALPRAZOLAM [Concomitant]
  3. POTASSIUM [Concomitant]
  4. ASPIRIN [Concomitant]
  5. CASODEX [Concomitant]
  6. MAGNESIUM [Concomitant]
  7. OXYCODONE HCL [Concomitant]
  8. VITAMIN E [Concomitant]
  9. ZESTRIL [Concomitant]
  10. LASIX [Concomitant]
  11. LUPRON [Concomitant]
  12. ARICEPT [Concomitant]
  13. NAMENDA [Concomitant]
  14. HEMRIL-30 [Concomitant]
  15. GOLYTELY [Concomitant]
  16. CALCIUM [Concomitant]
  17. IRON [Concomitant]
  18. FLUZONE [Concomitant]
  19. DIGOXIN [Suspect]
     Dosage: 0.125 MG;PO
     Route: 048
     Dates: start: 20080101, end: 20100226
  20. MULTIVITAMIN [Concomitant]
  21. ZOMETA [Concomitant]
  22. KRISTALOSE [Concomitant]
  23. METOPROLOL [Concomitant]
  24. LIPITOR [Concomitant]
  25. ZOLADEX [Concomitant]
  26. FOSAMAX [Concomitant]
  27. ZYPREXA [Concomitant]
  28. MIRALAX [Concomitant]
  29. TORADOL [Concomitant]
  30. VITAMIN D [Concomitant]
  31. BILBERRY SUPPLEMENT [Concomitant]
  32. RISPERIDONE [Concomitant]
  33. AMIODARONE [Concomitant]
  34. LEXAPRO [Concomitant]
  35. SPIRONOLACTONE [Concomitant]
  36. INDOMETHACIN [Concomitant]
  37. CEPHALEXIN [Concomitant]
  38. CARVEDILOL [Concomitant]

REACTIONS (94)
  - INCORRECT DOSE ADMINISTERED [None]
  - NAUSEA [None]
  - ATRIOVENTRICULAR BLOCK FIRST DEGREE [None]
  - HEPATIC LESION [None]
  - JOINT SWELLING [None]
  - VISUAL ACUITY REDUCED [None]
  - WHEEZING [None]
  - CONSTIPATION [None]
  - DIARRHOEA [None]
  - CONFUSIONAL STATE [None]
  - ANHEDONIA [None]
  - URINARY TRACT DISORDER [None]
  - MITRAL VALVE INCOMPETENCE [None]
  - AORTIC DILATATION [None]
  - BACK PAIN [None]
  - POLLAKIURIA [None]
  - RALES [None]
  - DRUG INTOLERANCE [None]
  - ACTIVITIES OF DAILY LIVING IMPAIRED [None]
  - CARDIO-RESPIRATORY ARREST [None]
  - ARTERIOSCLEROSIS CORONARY ARTERY [None]
  - DILATATION VENTRICULAR [None]
  - DIZZINESS [None]
  - BLOOD ALKALINE PHOSPHATASE INCREASED [None]
  - AORTIC STENOSIS [None]
  - PULMONARY HYPERTENSION [None]
  - ORTHOPNOEA [None]
  - BONE PAIN [None]
  - CARDIOMEGALY [None]
  - BLOOD POTASSIUM INCREASED [None]
  - CARDIORENAL SYNDROME [None]
  - ORTHOSTATIC HYPERTENSION [None]
  - DEPRESSION [None]
  - WEIGHT DECREASED [None]
  - HEADACHE [None]
  - LIVER FUNCTION TEST ABNORMAL [None]
  - EXERCISE TOLERANCE DECREASED [None]
  - ASTHENIA [None]
  - DYSPNOEA EXERTIONAL [None]
  - HYPOTHYROIDISM [None]
  - OSTEOARTHRITIS [None]
  - MEMORY IMPAIRMENT [None]
  - OEDEMA PERIPHERAL [None]
  - CONTUSION [None]
  - DYSKINESIA [None]
  - CARDIAC FAILURE CONGESTIVE [None]
  - PRODUCT QUALITY ISSUE [None]
  - TOXICITY TO VARIOUS AGENTS [None]
  - COUGH [None]
  - PULSE ABSENT [None]
  - IRON DEFICIENCY ANAEMIA [None]
  - HYPERLIPIDAEMIA [None]
  - BUNDLE BRANCH BLOCK LEFT [None]
  - TREATMENT NONCOMPLIANCE [None]
  - MYOCARDIAL INFARCTION [None]
  - SPINAL OSTEOARTHRITIS [None]
  - MEDICAL DEVICE COMPLICATION [None]
  - DECREASED APPETITE [None]
  - DEMENTIA [None]
  - RENAL FAILURE ACUTE [None]
  - JUDGEMENT IMPAIRED [None]
  - FAECALOMA [None]
  - FALL [None]
  - PAIN [None]
  - PROSTATE CANCER METASTATIC [None]
  - OEDEMA [None]
  - DISORIENTATION [None]
  - MYOCARDIAL ISCHAEMIA [None]
  - OSTEOPOROSIS [None]
  - DEHYDRATION [None]
  - DYSURIA [None]
  - VENTRICULAR TACHYCARDIA [None]
  - HEPATIC CYST [None]
  - OBSTRUCTIVE AIRWAYS DISORDER [None]
  - VENTRICULAR HYPOKINESIA [None]
  - ISCHAEMIC CARDIOMYOPATHY [None]
  - FATIGUE [None]
  - HYPOTENSION [None]
  - ANAEMIA [None]
  - ATRIAL FIBRILLATION [None]
  - AGITATION [None]
  - MULTIPLE INJURIES [None]
  - SINUS BRADYCARDIA [None]
  - THERAPEUTIC RESPONSE DECREASED [None]
  - LEFT ATRIAL DILATATION [None]
  - AORTIC VALVE INCOMPETENCE [None]
  - MITRAL VALVE CALCIFICATION [None]
  - TRICUSPID VALVE INCOMPETENCE [None]
  - PERICARDIAL EFFUSION [None]
  - ABDOMINAL DISCOMFORT [None]
  - CHEST PAIN [None]
  - DYSLIPIDAEMIA [None]
  - HYPOPHAGIA [None]
  - RIB FRACTURE [None]
